FAERS Safety Report 15702033 (Version 1)
Quarter: 2018Q4

REPORT INFORMATION
  Report Type: Spontaneous
  Country: US (occurrence: US)
  Receive Date: 20181207
  Receipt Date: 20181207
  Transmission Date: 20190205
  Serious: No
  Sender: FDA-Public Use
  Company Number: None

PATIENT
  Age: 37 Year
  Sex: Female
  Weight: 111.13 kg

DRUGS (1)
  1. NEXPLANON [Suspect]
     Active Substance: ETONOGESTREL

REACTIONS (7)
  - Menstruation irregular [None]
  - Mood swings [None]
  - Weight increased [None]
  - Oligomenorrhoea [None]
  - Complication associated with device [None]
  - Dysmenorrhoea [None]
  - Device dislocation [None]
